FAERS Safety Report 9511204 (Version 1)
Quarter: 2013Q1

REPORT INFORMATION
  Report Type: Spontaneous
  Country: US (occurrence: None)
  Receive Date: 20130305
  Receipt Date: 20130305
  Transmission Date: 20140127
  Serious: Yes (Other)
  Sender: FDA-Public Use
  Company Number: 163-21880-12122293

PATIENT
  Age: 62 Year
  Sex: Male
  Weight: 119.75 kg

DRUGS (11)
  1. REVLIMID (LENALIDOMIDE) (25 MILLIGRAM, CAPSULES) [Suspect]
     Indication: PLASMA CELL MYELOMA
     Dosage: 25 MG, 14 IN 14 D, PO
     Route: 048
     Dates: start: 20111011
  2. DEXAMETHASONE (DESAMETHASONE) [Concomitant]
  3. ADULT LOW DOSE ASPIRIN (ACETYLSALICYLIC ACID) [Concomitant]
  4. ASTELIN (AZELASTINE HYDROCHLORIDE) [Concomitant]
  5. AVAPRO (IRBESARTAN) [Concomitant]
  6. AZASAN (AZATHIOPRINE) [Concomitant]
  7. CLONAZEPAM (CLONAZEPAM) [Concomitant]
  8. COLACE (DOCUSATE SODIUM) [Concomitant]
  9. COUMADIN (WARFARIN SODIUM) [Concomitant]
  10. DOXYCYCLINE MONOHYDRATE (DOXYCYCLINE MONOHYDRATE) [Concomitant]
  11. GLUCOPHAGE (METFORMIN HYDROCHLORIDE) [Concomitant]

REACTIONS (3)
  - Neuropathy peripheral [None]
  - Fluid retention [None]
  - Condition aggravated [None]
